FAERS Safety Report 22601074 (Version 1)
Quarter: 2023Q2

REPORT INFORMATION
  Report Type: Spontaneous
  Country: US (occurrence: US)
  Receive Date: 20230614
  Receipt Date: 20230614
  Transmission Date: 20230722
  Serious: No
  Sender: FDA-Public Use
  Company Number: US-PFIZER INC-202300220786

PATIENT
  Age: 82 Year
  Sex: Male
  Weight: 74.83 kg

DRUGS (1)
  1. HYDROCORTISONE ACETATE [Suspect]
     Active Substance: HYDROCORTISONE ACETATE
     Indication: Erythema
     Dosage: UNK

REACTIONS (1)
  - Drug ineffective [Unknown]
